FAERS Safety Report 9319613 (Version 1)
Quarter: 2013Q2

REPORT INFORMATION
  Report Type: Spontaneous
  Country: US (occurrence: US)
  Receive Date: 20130530
  Receipt Date: 20130530
  Transmission Date: 20140414
  Serious: Yes (Hospitalization)
  Sender: FDA-Public Use
  Company Number: US-GLAXOSMITHKLINE-A1012923A

PATIENT
  Sex: Female

DRUGS (2)
  1. FLOLAN [Suspect]
     Dosage: 35NGKM CONTINUOUS
     Route: 042
     Dates: start: 20090302
  2. REVATIO [Concomitant]

REACTIONS (1)
  - Adverse event [Unknown]
